FAERS Safety Report 18209549 (Version 1)
Quarter: 2020Q3

REPORT INFORMATION
  Report Type: Report from Study
  Country: US (occurrence: US)
  Receive Date: 20200828
  Receipt Date: 20200828
  Transmission Date: 20201103
  Serious: Yes (Hospitalization)
  Sender: FDA-Public Use
  Company Number: US-GILEAD-2020-0492368

PATIENT
  Age: 3 Year
  Sex: Male

DRUGS (1)
  1. AZTREONAM LYSINE [Suspect]
     Active Substance: AZTREONAM LYSINE
     Indication: LUNG DISORDER
     Dosage: 75 MG, TID, 28 DAYS ON, 28 DAYS OFF
     Route: 065
     Dates: start: 20200618

REACTIONS (2)
  - Viral infection [Unknown]
  - Off label use [Not Recovered/Not Resolved]
